FAERS Safety Report 22049705 (Version 1)
Quarter: 2023Q1

REPORT INFORMATION
  Report Type: Spontaneous
  Country: US (occurrence: None)
  Receive Date: 20230228
  Receipt Date: 20230228
  Transmission Date: 20230418
  Serious: No
  Sender: FDA-Public Use
  Company Number: None

PATIENT
  Age: 47 Year
  Sex: Female

DRUGS (6)
  1. AZITHROMYCIN [Suspect]
     Active Substance: AZITHROMYCIN
     Indication: Sinus congestion
     Dosage: FREQUENCY : DAILY;?
     Route: 048
  2. AZITHROMYCIN [Suspect]
     Active Substance: AZITHROMYCIN
     Indication: Oropharyngeal discomfort
  3. AZITHROMYCIN [Suspect]
     Active Substance: AZITHROMYCIN
     Indication: Headache
  4. AZITHROMYCIN [Suspect]
     Active Substance: AZITHROMYCIN
     Indication: Infection
  5. tadalafil 2.5mg tab [Concomitant]
     Dates: start: 20220720
  6. SILDENAFIL [Concomitant]
     Active Substance: SILDENAFIL
     Dates: start: 20220728

REACTIONS (4)
  - Drug ineffective [None]
  - Product measured potency issue [None]
  - Immunodeficiency [None]
  - Infection [None]

NARRATIVE: CASE EVENT DATE: 20230228
